FAERS Safety Report 4854719-9 (Version None)
Quarter: 2005Q4

REPORT INFORMATION
  Report Type: 
  Country: None (occurrence: None)
  Receive Date: 20051215
  Receipt Date: 20050913
  Transmission Date: 20060501
  Serious: Yes (Disabling)
  Sender: FDA-Public Use
  Company Number: US-GLAXOSMITHKLINE-A0574081A

PATIENT
  Age: 48 Year
  Sex: Male

DRUGS (2)
  1. EPIVIR-HBV [Suspect]
     Indication: HEPATITIS B
     Dosage: 150MG PER DAY
     Route: 048
     Dates: start: 20050401, end: 20050801
  2. NO CONCURRENT MEDICATION [Concomitant]

REACTIONS (6)
  - DRY SKIN [None]
  - INSOMNIA [None]
  - PARAESTHESIA [None]
  - PRESCRIBED OVERDOSE [None]
  - PRURITUS [None]
  - RASH PAPULAR [None]
